FAERS Safety Report 6150269-0 (Version None)
Quarter: 2009Q2

REPORT INFORMATION
  Report Type: 
  Country: None (occurrence: None)
  Receive Date: 20090407
  Receipt Date: 20090407
  Transmission Date: 20091009
  Serious: Yes (Hospitalization, Other)
  Sender: FDA-Public Use
  Company Number: None

PATIENT
  Age: 46 Year
  Sex: Female
  Weight: 58.0604 kg

DRUGS (1)
  1. CHANTIX [Suspect]
     Indication: SMOKING CESSATION THERAPY
     Dosage: 0.5 1 A DAY 1 MG. 1 IN MORNING 1 AT NITE
     Dates: start: 20080218, end: 20080304

REACTIONS (13)
  - ANXIETY [None]
  - CHOLECYSTECTOMY [None]
  - CONSCIOUSNESS FLUCTUATING [None]
  - FACIAL PALSY [None]
  - GASTROINTESTINAL DISORDER [None]
  - GASTROOESOPHAGEAL REFLUX DISEASE [None]
  - LOSS OF CONSCIOUSNESS [None]
  - LOSS OF EMPLOYMENT [None]
  - MALAISE [None]
  - RENAL CYST [None]
  - THYROID NEOPLASM [None]
  - URINARY TRACT INFECTION [None]
  - WEIGHT DECREASED [None]
